FAERS Safety Report 19134053 (Version 3)
Quarter: 2021Q2

REPORT INFORMATION
  Report Type: Report from Study
  Country: None (occurrence: US)
  Receive Date: 20210414
  Receipt Date: 20210430
  Transmission Date: 20210717
  Serious: Yes (Hospitalization, Disabling, Other)
  Sender: FDA-Public Use
  Company Number: US-ABBVIE-21K-163-3839132-00

PATIENT
  Age: 56 Year
  Sex: Female
  Weight: 59.02 kg

DRUGS (1)
  1. HUMIRA [Suspect]
     Active Substance: ADALIMUMAB
     Indication: RHEUMATOID ARTHRITIS
     Route: 058
     Dates: start: 201911

REACTIONS (23)
  - Skin discolouration [Recovered/Resolved]
  - Yellow skin [Recovered/Resolved]
  - Skin discolouration [Not Recovered/Not Resolved]
  - Calcinosis [Not Recovered/Not Resolved]
  - Haemoglobin decreased [Recovered/Resolved]
  - Poor peripheral circulation [Not Recovered/Not Resolved]
  - Dialysis [Unknown]
  - Pain in extremity [Recovered/Resolved]
  - Calcinosis [Unknown]
  - Poor peripheral circulation [Not Recovered/Not Resolved]
  - Muscle spasms [Recovered/Resolved]
  - Poor peripheral circulation [Recovered/Resolved]
  - Transfusion [Unknown]
  - Post procedural complication [Recovered/Resolved]
  - Inflammation [Unknown]
  - Pruritus [Unknown]
  - Localised infection [Not Recovered/Not Resolved]
  - Skin discolouration [Recovered/Resolved]
  - Skin discolouration [Recovered/Resolved]
  - Osteomyelitis [Not Recovered/Not Resolved]
  - Pain in extremity [Not Recovered/Not Resolved]
  - Fall [Recovered/Resolved]
  - Muscle spasms [Not Recovered/Not Resolved]

NARRATIVE: CASE EVENT DATE: 20201225
